FAERS Safety Report 8819728 (Version 3)
Quarter: 2014Q3

REPORT INFORMATION
  Report Type: Report from Study
  Country: US (occurrence: US)
  Receive Date: 20121001
  Receipt Date: 20140905
  Transmission Date: 20150326
  Serious: Yes (Other)
  Sender: FDA-Public Use
  Company Number: US-ROCHE-1128132

PATIENT
  Sex: Female

DRUGS (13)
  1. NEUPOGEN [Concomitant]
     Active Substance: FILGRASTIM
  2. TAXOTERE [Concomitant]
     Active Substance: DOCETAXEL
     Route: 065
     Dates: start: 20000608, end: 200008
  3. CARBOPLATINUM [Concomitant]
     Active Substance: CARBOPLATIN
     Route: 065
     Dates: start: 20000120, end: 20000511
  4. HERCEPTIN [Suspect]
     Active Substance: TRASTUZUMAB
     Indication: CERVIX CARCINOMA
  5. CARBOPLATINUM [Concomitant]
     Active Substance: CARBOPLATIN
     Route: 065
     Dates: start: 199904, end: 200001
  6. LEUKINE [Concomitant]
     Active Substance: SARGRAMOSTIM
  7. MITOMYCIN C [Concomitant]
     Active Substance: MITOMYCIN
     Route: 065
     Dates: start: 20000928, end: 20001228
  8. TAXOL [Concomitant]
     Active Substance: PACLITAXEL
     Route: 065
     Dates: start: 199904, end: 200001
  9. GEMZAR [Concomitant]
     Active Substance: GEMCITABINE HYDROCHLORIDE
  10. PLATINOL [Concomitant]
     Active Substance: CISPLATIN
  11. HERCEPTIN [Suspect]
     Active Substance: TRASTUZUMAB
     Indication: ADENOSQUAMOUS CARCINOMA OF THE CERVIX
     Route: 065
     Dates: start: 20000608
  12. CPT-11 [Concomitant]
     Active Substance: IRINOTECAN
     Route: 065
     Dates: start: 20000928, end: 20001228
  13. TAXOL [Concomitant]
     Active Substance: PACLITAXEL
     Route: 065
     Dates: start: 20000120, end: 20000511

REACTIONS (23)
  - Breath sounds abnormal [Unknown]
  - Pain in extremity [Unknown]
  - Off label use [Unknown]
  - Pleural effusion [Unknown]
  - Epigastric discomfort [Unknown]
  - Rash [Unknown]
  - Musculoskeletal pain [Unknown]
  - Metastases to abdominal wall [Unknown]
  - Disease progression [Unknown]
  - Dyspnoea [Unknown]
  - Onychomadesis [Unknown]
  - Neuropathy peripheral [Unknown]
  - Rash macular [Unknown]
  - Laryngospasm [Unknown]
  - Chest discomfort [Unknown]
  - Musculoskeletal discomfort [Unknown]
  - Thrombophlebitis superficial [Unknown]
  - Abdominal discomfort [Unknown]
  - Lacrimal disorder [Unknown]
  - Injection site pain [Unknown]
  - Diarrhoea [Unknown]
  - Oedema peripheral [Unknown]
  - Fatigue [Unknown]
